FAERS Safety Report 22147060 (Version 1)
Quarter: 2023Q1

REPORT INFORMATION
  Report Type: Spontaneous
  Country: US (occurrence: None)
  Receive Date: 20230327
  Receipt Date: 20230327
  Transmission Date: 20230417
  Serious: Yes (Hospitalization)
  Sender: FDA-Public Use
  Company Number: None

PATIENT
  Age: 78 Year
  Sex: Male

DRUGS (8)
  1. ABIRATERONE ACETATE [Suspect]
     Active Substance: ABIRATERONE ACETATE
     Indication: Prostate cancer
     Route: 048
     Dates: start: 20220409, end: 20220623
  2. ATORVASTATIN [Concomitant]
     Active Substance: ATORVASTATIN
  3. HUMALOG KWIKPEN [Concomitant]
     Active Substance: INSULIN LISPRO
  4. LOSARTAN [Concomitant]
     Active Substance: LOSARTAN
  5. PREDNISONE [Concomitant]
     Active Substance: PREDNISONE
  6. FERMADONE [Concomitant]
  7. LANTUS [Concomitant]
     Active Substance: INSULIN GLARGINE
  8. AMOLODIPINE [Concomitant]

REACTIONS (12)
  - Rhabdomyolysis [None]
  - Liver disorder [None]
  - Swelling [None]
  - Blister [None]
  - Multiple organ dysfunction syndrome [None]
  - Fatigue [None]
  - Gait inability [None]
  - Oedema [None]
  - Penile oedema [None]
  - Scrotal oedema [None]
  - Diarrhoea [None]
  - Cholelithiasis [None]

NARRATIVE: CASE EVENT DATE: 20220623
